FAERS Safety Report 6516273-5 (Version None)
Quarter: 2009Q4

REPORT INFORMATION
  Report Type: 
  Country: None (occurrence: None)
  Receive Date: 20091223
  Receipt Date: 20091215
  Transmission Date: 20100525
  Serious: Yes (Death, Hospitalization)
  Sender: FDA-Public Use
  Company Number: US-AMGEN-US380542

PATIENT
  Age: 61 Year
  Sex: Female
  Weight: 86 kg

DRUGS (3)
  1. PANITUMUMAB [Suspect]
     Indication: PANCREATIC CARCINOMA
     Route: 042
     Dates: start: 20090818, end: 20091124
  2. GEMCITABINE [Suspect]
     Route: 042
     Dates: start: 20090818, end: 20091124
  3. TARCEVA [Suspect]
     Route: 048
     Dates: start: 20090818, end: 20091207

REACTIONS (3)
  - DEATH [None]
  - DYSPNOEA [None]
  - HYPOXIA [None]
